FAERS Safety Report 9355400 (Version 3)
Quarter: 2014Q1

REPORT INFORMATION
  Report Type: Spontaneous
  Country: GB (occurrence: GB)
  Receive Date: 20130619
  Receipt Date: 20140117
  Transmission Date: 20141002
  Serious: Yes (Death, Life-Threatening, Hospitalization, Other)
  Sender: FDA-Public Use
  Company Number: GB-MERCK-1306GBR007800

PATIENT
  Age: 73 Year
  Sex: Male
  Weight: 73 kg

DRUGS (5)
  1. JANUVIA [Suspect]
     Indication: DIABETES MELLITUS
     Dosage: 100 MG, QD
     Route: 048
     Dates: start: 201012, end: 201210
  2. METFORMIN [Concomitant]
     Indication: DIABETES MELLITUS
     Dosage: 500 MG, QD
     Dates: start: 2007
  3. GLICLAZIDE [Concomitant]
     Indication: DIABETES MELLITUS
     Dosage: 80 MG, QD
     Dates: start: 201010, end: 201011
  4. SIMVASTATIN [Concomitant]
     Indication: BLOOD CHOLESTEROL DECREASED
     Dosage: 40 MG, QD
     Route: 048
     Dates: start: 200407
  5. BEZAFIBRATE [Concomitant]
     Dosage: 400 MG, TID
     Dates: start: 20130228

REACTIONS (3)
  - Septic shock [Fatal]
  - Pancreatitis acute [Fatal]
  - Pancreatitis [Recovered/Resolved]
